FAERS Safety Report 7280018-4 (Version None)
Quarter: 2011Q1

REPORT INFORMATION
  Report Type: 
  Country: None (occurrence: None)
  Receive Date: 20110125
  Receipt Date: 20110112
  Transmission Date: 20110831
  Serious: Yes (Hospitalization, Other)
  Sender: FDA-Public Use
  Company Number: ACO_21433_2011

PATIENT
  Age: 44 Year
  Sex: Female

DRUGS (5)
  1. INSULIN (INSULIN) [Concomitant]
  2. ASPIRIN [Concomitant]
  3. LIPITOR [Concomitant]
  4. COPAXONE [Concomitant]
  5. AMPYRA [Suspect]
     Indication: PRODUCT USED FOR UNKNOWN INDICATION
     Dosage: 10 MG, BID, ORAL
     Route: 048
     Dates: start: 20101216, end: 20110111

REACTIONS (6)
  - CONFUSIONAL STATE [None]
  - ELECTROENCEPHALOGRAM ABNORMAL [None]
  - FALL [None]
  - GRAND MAL CONVULSION [None]
  - DISORIENTATION [None]
  - DYSPNOEA [None]
